FAERS Safety Report 6314396-7 (Version None)
Quarter: 2009Q3

REPORT INFORMATION
  Report Type: 
  Country: None (occurrence: None)
  Receive Date: 20090817
  Receipt Date: 20090805
  Transmission Date: 20100115
  Serious: Yes (Other)
  Sender: FDA-Public Use
  Company Number: TPH-00211

PATIENT
  Age: 29 Year
  Sex: Female

DRUGS (8)
  1. NORDETTE-28 [Suspect]
     Indication: DYSMENORRHOEA
     Dosage: ORAL
     Route: 048
     Dates: end: 20040820
  2. NORDETTE-28 [Suspect]
     Indication: MENORRHAGIA
     Dosage: ORAL
     Route: 048
     Dates: end: 20040820
  3. NEVIRAPINE [Suspect]
     Indication: HIV INFECTION
     Dosage: 400 MG
     Route: 065
     Dates: start: 19990101
  4. ETHINYL ESTRADIOL AND LEVONORGESTREL [Suspect]
     Indication: DYSMENORRHOEA
     Dosage: NI
     Route: 048
     Dates: start: 20040428
  5. ETHINYL ESTRADIOL AND LEVONORGESTREL [Suspect]
     Indication: MENORRHAGIA
     Dosage: NI
     Route: 048
     Dates: start: 20040428
  6. COMBIVIR [Concomitant]
  7. MEFENAMIC ACID [Concomitant]
  8. TRANEXAMIC ACID (TRANEXAMIC ACID) [Concomitant]

REACTIONS (5)
  - ADENOMYOSIS [None]
  - ANAEMIA [None]
  - DRUG INTERACTION [None]
  - DYSMENORRHOEA [None]
  - MENORRHAGIA [None]
